FAERS Safety Report 13005162 (Version 1)
Quarter: 2016Q4

REPORT INFORMATION
  Report Type: Report from Study
  Country: US (occurrence: US)
  Receive Date: 20161207
  Receipt Date: 20161207
  Transmission Date: 20170207
  Serious: Yes (Hospitalization)
  Sender: FDA-Public Use
  Company Number: US-BIOGEN-2016BI00325491

PATIENT
  Age: 61 Year
  Sex: Male

DRUGS (1)
  1. TECFIDERA [Suspect]
     Active Substance: DIMETHYL FUMARATE
     Indication: MULTIPLE SCLEROSIS
     Dosage: MAINTENANCE DOSE
     Route: 048
     Dates: start: 201307

REACTIONS (4)
  - Trunk injury [Not Recovered/Not Resolved]
  - Fall [Recovered/Resolved]
  - Head injury [Not Recovered/Not Resolved]
  - Nosocomial infection [Unknown]

NARRATIVE: CASE EVENT DATE: 201611
